FAERS Safety Report 14188642 (Version 6)
Quarter: 2018Q1

REPORT INFORMATION
  Report Type: Spontaneous
  Country: US (occurrence: US)
  Receive Date: 20171114
  Receipt Date: 20180315
  Transmission Date: 20180508
  Serious: Yes (Hospitalization)
  Sender: FDA-Public Use
  Company Number: US-ACTELION-A-US2017-162358

PATIENT
  Age: 10 Month
  Sex: Male

DRUGS (3)
  1. TRACLEER [Suspect]
     Active Substance: BOSENTAN
     Indication: PULMONARY ARTERIAL HYPERTENSION
     Dosage: 4 MG, BID
     Route: 048
     Dates: start: 20170825
  2. TRACLEER [Suspect]
     Active Substance: BOSENTAN
     Dosage: 10 MG, BID
     Route: 049
     Dates: start: 20171229
  3. TADALAFIL [Concomitant]
     Active Substance: TADALAFIL
     Dosage: 5 MG, QD
     Dates: start: 201707

REACTIONS (10)
  - Respiratory distress [Recovered/Resolved]
  - Cough [Recovered/Resolved]
  - Cyanosis [Recovered/Resolved]
  - Dyspnoea [Recovered/Resolved]
  - Irritability [Recovered/Resolved]
  - Feeding intolerance [Recovered/Resolved]
  - Lethargy [Recovered/Resolved]
  - Oxygen therapy [Recovered/Resolved]
  - Pneumonia [Recovered/Resolved]
  - Pulmonary congestion [Recovered/Resolved]

NARRATIVE: CASE EVENT DATE: 201710
